FAERS Safety Report 20017533 (Version 1)
Quarter: 2021Q4

REPORT INFORMATION
  Report Type: Spontaneous
  Country: IN (occurrence: IN)
  Receive Date: 20211031
  Receipt Date: 20211031
  Transmission Date: 20220303
  Serious: Yes (Death)
  Sender: FDA-Public Use
  Company Number: IN-CADILA HEALTHCARE LIMITED-IN-ZYDUS-070871

PATIENT

DRUGS (10)
  1. CYCLOPHOSPHAMIDE [Suspect]
     Active Substance: CYCLOPHOSPHAMIDE
     Indication: Sarcoma
     Dosage: UNK
     Route: 065
  2. CYCLOPHOSPHAMIDE [Suspect]
     Active Substance: CYCLOPHOSPHAMIDE
     Indication: Peripheral primitive neuroectodermal bone tumour
  3. DOXORUBICIN [Suspect]
     Active Substance: DOXORUBICIN
     Indication: Sarcoma
     Dosage: UNK
     Route: 065
  4. DOXORUBICIN [Suspect]
     Active Substance: DOXORUBICIN
     Indication: Peripheral primitive neuroectodermal bone tumour
  5. VINCRISTINE [Suspect]
     Active Substance: VINCRISTINE
     Indication: Sarcoma
     Route: 065
  6. VINCRISTINE [Suspect]
     Active Substance: VINCRISTINE
     Indication: Peripheral primitive neuroectodermal bone tumour
  7. IFOSFAMIDE [Suspect]
     Active Substance: IFOSFAMIDE
     Indication: Sarcoma
     Route: 065
  8. IFOSFAMIDE [Suspect]
     Active Substance: IFOSFAMIDE
     Indication: Peripheral primitive neuroectodermal bone tumour
  9. ETOPOSIDE [Suspect]
     Active Substance: ETOPOSIDE
     Indication: Sarcoma
     Dosage: UNK
     Route: 065
  10. ETOPOSIDE [Suspect]
     Active Substance: ETOPOSIDE
     Indication: Peripheral primitive neuroectodermal bone tumour

REACTIONS (1)
  - Cardiac failure [Fatal]
